FAERS Safety Report 4745721-6 (Version None)
Quarter: 2005Q3

REPORT INFORMATION
  Report Type: 
  Country: None (occurrence: None)
  Receive Date: 20050811
  Receipt Date: 20050802
  Transmission Date: 20060218
  Serious: Yes (Hospitalization)
  Sender: FDA-Public Use
  Company Number: 2005085550

PATIENT
  Age: 47 Year
  Sex: Male

DRUGS (7)
  1. RELPAX [Suspect]
     Indication: MIGRAINE
     Dosage: 60 MG (20 MG, AS NECESSARY), ORAL
     Route: 048
     Dates: start: 20040702
  2. BUFFERIN [Suspect]
     Indication: TENSION HEADACHE
     Dosage: 330 MG, ORAL
     Route: 048
     Dates: start: 20040702
  3. PROCATEROL HCL [Concomitant]
  4. FLOMOX (CEFCAPENE PIVOXIL HYDROCHLORIDE) [Concomitant]
  5. CODEINE PHOSPHATE (CODEINE PHOSPHATE) [Concomitant]
  6. LOXONIN (LOXOPROFEN SODIUM) [Concomitant]
  7. MUCOSTA (REBAMIPIDE) [Concomitant]

REACTIONS (7)
  - ASTHMA [None]
  - BRONCHITIS [None]
  - CLONIC CONVULSION [None]
  - LARYNGOPHARYNGITIS [None]
  - LOSS OF CONSCIOUSNESS [None]
  - NO REACTION ON PREVIOUS EXPOSURE TO DRUG [None]
  - OVERDOSE [None]
